FAERS Safety Report 18863044 (Version 1)
Quarter: 2021Q1

REPORT INFORMATION
  Report Type: Report from Study
  Country: US (occurrence: US)
  Receive Date: 20210209
  Receipt Date: 20210209
  Transmission Date: 20210420
  Serious: No
  Sender: FDA-Public Use
  Company Number: US-ACADIA PHARMACEUTICALS INC.-ACA-2021-PIM-000154

PATIENT
  Age: 83 Year
  Sex: Female

DRUGS (15)
  1. BUSPIRONE [Concomitant]
     Active Substance: BUSPIRONE HYDROCHLORIDE
  2. BAYER ASPIRIN [Concomitant]
     Active Substance: ASPIRIN
  3. FEMARA [Concomitant]
     Active Substance: LETROZOLE
  4. AMLODIPINE BENZOATE [Concomitant]
     Active Substance: AMLODIPINE BENZOATE
  5. NUPLAZID [Suspect]
     Active Substance: PIMAVANSERIN TARTRATE
     Indication: PARKINSON^S DISEASE
     Dosage: 34 MILLIGRAM, QD
     Route: 048
     Dates: start: 20200403
  6. ASPIRIN 81 [Concomitant]
     Active Substance: ASPIRIN
  7. OSCAL [Concomitant]
     Active Substance: CALCIUM CARBONATE
  8. ARICEPT [Concomitant]
     Active Substance: DONEPEZIL HYDROCHLORIDE
  9. LIPITOR [Concomitant]
     Active Substance: ATORVASTATIN CALCIUM
  10. LOTREL [LOTEPREDNOL ETABONATE] [Concomitant]
     Active Substance: LOTEPREDNOL ETABONATE
  11. ATORVASTATIN [Concomitant]
     Active Substance: ATORVASTATIN
  12. LITHIUM. [Concomitant]
     Active Substance: LITHIUM
  13. LIAID [Concomitant]
  14. CENTRUM FOR WOMEN [Concomitant]
     Active Substance: VITAMINS
  15. PRISTIQ EXTENDED?RELEASE [Concomitant]
     Active Substance: DESVENLAFAXINE SUCCINATE

REACTIONS (1)
  - Tremor [Not Recovered/Not Resolved]

NARRATIVE: CASE EVENT DATE: 20200903
